FAERS Safety Report 11638769 (Version 1)
Quarter: 2015Q4

REPORT INFORMATION
  Report Type: Spontaneous
  Country: FR (occurrence: FR)
  Receive Date: 20151016
  Receipt Date: 20151016
  Transmission Date: 20160304
  Serious: Yes (Hospitalization)
  Sender: FDA-Public Use
  Company Number: FR-ASTRAZENECA-2015SE99351

PATIENT
  Age: 48 Year
  Sex: Female

DRUGS (9)
  1. STRESAM [Suspect]
     Active Substance: ETIFOXINE
     Route: 048
  2. EFFEXOR [Suspect]
     Active Substance: VENLAFAXINE HYDROCHLORIDE
     Route: 048
  3. REBIF [Suspect]
     Active Substance: INTERFERON BETA-1A
     Indication: MULTIPLE SCLEROSIS
     Route: 058
  4. VESICARE [Suspect]
     Active Substance: SOLIFENACIN SUCCINATE
     Indication: MULTIPLE SCLEROSIS
     Route: 048
  5. COTAREG [Suspect]
     Active Substance: HYDROCHLOROTHIAZIDE\VALSARTAN
     Dosage: 160 MG / 12.5 MG ONE DF IN THE MORNING
     Route: 048
  6. SYMBICORT [Suspect]
     Active Substance: BUDESONIDE\FORMOTEROL FUMARATE DIHYDRATE
     Dosage: 400 ONE DF IN THE MORNING AND ONE DF IN THE EVENING
     Route: 055
  7. LEVOTHYROXINE SODIUM. [Suspect]
     Active Substance: LEVOTHYROXINE SODIUM
     Indication: MULTIPLE SCLEROSIS
     Route: 048
  8. OMEPRAZOLE. [Suspect]
     Active Substance: OMEPRAZOLE
     Route: 048
  9. FAMPYRA [Suspect]
     Active Substance: DALFAMPRIDINE
     Indication: MULTIPLE SCLEROSIS
     Route: 048

REACTIONS (2)
  - Dermatomyositis [Unknown]
  - Cutaneous lupus erythematosus [Unknown]

NARRATIVE: CASE EVENT DATE: 201505
